FAERS Safety Report 9238170 (Version 1)
Quarter: 2013Q2

REPORT INFORMATION
  Report Type: Spontaneous
  Country: US (occurrence: None)
  Receive Date: 20130415
  Receipt Date: 20130415
  Transmission Date: 20140414
  Serious: Yes (Other)
  Sender: FDA-Public Use
  Company Number: ACO_35347_2013

PATIENT
  Age: 56 Year
  Sex: Male
  Weight: 73.5 kg

DRUGS (10)
  1. AMPYRA (DALFAMPRIDINE) TABLET, 10MG [Suspect]
     Indication: GAIT DISTURBANCE
     Route: 048
  2. TIZANIDINE (TIZANIDINE HYDROCHLORIDE) [Concomitant]
  3. COPAXONE (GLATIRAMER ACETATE) [Concomitant]
  4. VITAMINS ONGOING [Concomitant]
  5. NSAID^S [Concomitant]
  6. IBUPROFEN (IBUPROFEN) [Concomitant]
  7. TOPROL (METOPROLOL SUCCINATE) [Concomitant]
  8. LEXAPRO (ESCITALOPRAM OXALATE) [Concomitant]
  9. VITAMIN B NOS (VITAMIN B NOS) [Concomitant]
  10. IMMUNOGLOBULIN (IMMUNOGLOBULINS NOS) [Concomitant]

REACTIONS (6)
  - Blood pressure increased [None]
  - Movement disorder [None]
  - Muscle contractions involuntary [None]
  - Musculoskeletal stiffness [None]
  - Drug dose omission [None]
  - Drug ineffective [None]
